FAERS Safety Report 7501237-5 (Version None)
Quarter: 2011Q2

REPORT INFORMATION
  Report Type: 
  Country: None (occurrence: None)
  Receive Date: 20110524
  Receipt Date: 20110516
  Transmission Date: 20111010
  Serious: Yes (Hospitalization)
  Sender: FDA-Public Use
  Company Number: US-ENDO PHARMACEUTICALS INC.-FRVA20110013

PATIENT
  Sex: Female

DRUGS (1)
  1. FROVATRIPTAN SUCCINATE [Suspect]
     Indication: MIGRAINE
     Dosage: 2.5 MG
     Route: 048
     Dates: start: 20090101

REACTIONS (4)
  - HYPERSENSITIVITY [None]
  - LOSS OF CONSCIOUSNESS [None]
  - COELIAC DISEASE [None]
  - BLOOD PRESSURE DECREASED [None]
